FAERS Safety Report 9833454 (Version 2)
Quarter: 2014Q1

REPORT INFORMATION
  Report Type: Report from Study
  Country: CH (occurrence: CH)
  Receive Date: 20140122
  Receipt Date: 20140224
  Transmission Date: 20141002
  Serious: Yes (Hospitalization)
  Sender: FDA-Public Use
  Company Number: CH-ROCHE-1336174

PATIENT
  Age: 78 Year
  Sex: Female

DRUGS (4)
  1. BEVACIZUMAB [Suspect]
     Indication: LUNG NEOPLASM MALIGNANT
     Dosage: MOST RECENT DOSE PRIOR TO SAE: 31/12/2013
     Route: 042
     Dates: start: 20120612
  2. ERLOTINIB [Suspect]
     Indication: LUNG NEOPLASM MALIGNANT
     Dosage: MOST RECENT DOSE PRIOR TO SAE: 16/JAN/2014
     Route: 048
     Dates: start: 20120612
  3. VITAMIN D3 [Concomitant]
     Route: 048
  4. CALCIMAGON [Concomitant]
     Route: 048

REACTIONS (1)
  - Spinal fracture [Recovered/Resolved]
